FAERS Safety Report 6504210-9 (Version None)
Quarter: 2009Q4

REPORT INFORMATION
  Report Type: 
  Country: None (occurrence: None)
  Receive Date: 20091217
  Receipt Date: 20091214
  Transmission Date: 20100525
  Serious: Yes (Death)
  Sender: FDA-Public Use
  Company Number: US-WYE-H09824709

PATIENT
  Sex: Male

DRUGS (4)
  1. EFFEXOR XR [Suspect]
     Indication: DEPRESSION
     Dates: start: 20061101, end: 20070401
  2. EFFEXOR XR [Suspect]
     Indication: EPILEPSY
     Dates: start: 20070401
  3. TEGRETOL [Concomitant]
     Indication: EPILEPSY
  4. DEPAKOTE [Concomitant]
     Indication: EPILEPSY

REACTIONS (4)
  - COMPLETED SUICIDE [None]
  - DRUG INEFFECTIVE [None]
  - GUN SHOT WOUND [None]
  - SUICIDAL IDEATION [None]
